APPROVED DRUG PRODUCT: ARMODAFINIL
Active Ingredient: ARMODAFINIL
Strength: 150MG
Dosage Form/Route: TABLET;ORAL
Application: A201514 | Product #002 | TE Code: AB
Applicant: COREPHARMA LLC
Approved: Mar 25, 2019 | RLD: No | RS: No | Type: RX